FAERS Safety Report 5655792-0 (Version None)
Quarter: 2008Q1

REPORT INFORMATION
  Report Type: 
  Country: None (occurrence: None)
  Receive Date: 20080307
  Receipt Date: 20080225
  Transmission Date: 20080703
  Serious: Yes (Other)
  Sender: FDA-Public Use
  Company Number: BR-PFIZER INC-2008002066

PATIENT
  Sex: Female
  Weight: 52 kg

DRUGS (4)
  1. DEPO-PROVERA SUSPENSION/INJ [Suspect]
     Indication: CONTRACEPTION
     Route: 030
     Dates: start: 20070101, end: 20070101
  2. DEPO-PROVERA SUSPENSION/INJ [Suspect]
     Route: 030
     Dates: start: 20080101, end: 20080101
  3. SERTRALINE [Concomitant]
     Indication: DEPRESSION
  4. RIVOTRIL [Concomitant]
     Indication: DEPRESSION

REACTIONS (9)
  - AMENORRHOEA [None]
  - DEPRESSION [None]
  - DIARRHOEA [None]
  - DIZZINESS [None]
  - HEADACHE [None]
  - METRORRHAGIA [None]
  - NECK PAIN [None]
  - VOMITING [None]
  - WEIGHT INCREASED [None]
